FAERS Safety Report 14917765 (Version 4)
Quarter: 2019Q1

REPORT INFORMATION
  Report Type: Spontaneous
  Country: US (occurrence: US)
  Receive Date: 20180521
  Receipt Date: 20190227
  Transmission Date: 20190417
  Serious: Yes (Other)
  Sender: FDA-Public Use
  Company Number: US-BAUSCH-BL-2017-011864

PATIENT
  Age: 43 Year
  Sex: Female
  Weight: 86.26 kg

DRUGS (1)
  1. CUPRIMINE [Suspect]
     Active Substance: PENICILLAMINE
     Indication: HEPATO-LENTICULAR DEGENERATION
     Dosage: START DATE: THIRTY EIGHT YEARS PRIOR TO FOLLOW-UP ON 18/FEB/2019
     Route: 048
     Dates: end: 20190130

REACTIONS (5)
  - Blood cholesterol increased [Unknown]
  - Therapy cessation [Unknown]
  - Product availability issue [Unknown]
  - Type 2 diabetes mellitus [Unknown]
  - Gastric disorder [Unknown]

NARRATIVE: CASE EVENT DATE: 201704
